FAERS Safety Report 12632290 (Version 2)
Quarter: 2016Q3

REPORT INFORMATION
  Report Type: Spontaneous
  Country: US (occurrence: US)
  Receive Date: 20160808
  Receipt Date: 20160808
  Transmission Date: 20161109
  Serious: No
  Sender: FDA-Public Use
  Company Number: US-BEH-2016062324

PATIENT
  Sex: Female
  Weight: 78 kg

DRUGS (18)
  1. HIZENTRA [Suspect]
     Active Substance: HUMAN IMMUNOGLOBULIN G
  2. DIPHENHYDRAMINE. [Concomitant]
     Active Substance: DIPHENHYDRAMINE
  3. L.M-X [Concomitant]
  4. SEROQUEL [Concomitant]
     Active Substance: QUETIAPINE FUMARATE
  5. NEOSPORIN+PAIN RELIEF [Concomitant]
  6. HIZENTRA [Suspect]
     Active Substance: HUMAN IMMUNOGLOBULIN G
  7. HIZENTRA [Suspect]
     Active Substance: HUMAN IMMUNOGLOBULIN G
     Indication: IMMUNODEFICIENCY COMMON VARIABLE
     Route: 058
  8. PAXIL [Concomitant]
     Active Substance: PAROXETINE HYDROCHLORIDE
  9. AUGMENTIN [Concomitant]
     Active Substance: AMOXICILLIN\CLAVULANATE POTASSIUM
  10. ALPRAZOLAM. [Concomitant]
     Active Substance: ALPRAZOLAM
  11. EPIPEN [Concomitant]
     Active Substance: EPINEPHRINE
  12. VITAMIN D [Concomitant]
     Active Substance: CHOLECALCIFEROL
  13. BACTRIM [Concomitant]
     Active Substance: SULFAMETHOXAZOLE\TRIMETHOPRIM
  14. TOBRAMYCIN. [Concomitant]
     Active Substance: TOBRAMYCIN
  15. GENTAMICIN. [Concomitant]
     Active Substance: GENTAMICIN
  16. GLEEVEC [Concomitant]
     Active Substance: IMATINIB MESYLATE
  17. HIZENTRA [Suspect]
     Active Substance: HUMAN IMMUNOGLOBULIN G
  18. CIPRO [Concomitant]
     Active Substance: CIPROFLOXACIN HYDROCHLORIDE

REACTIONS (1)
  - Infusion site pruritus [Unknown]
